FAERS Safety Report 5180949-5 (Version None)
Quarter: 2006Q4

REPORT INFORMATION
  Report Type: 
  Country: None (occurrence: None)
  Receive Date: 20061220
  Receipt Date: 20061211
  Transmission Date: 20070319
  Serious: Yes (Other)
  Sender: FDA-Public Use
  Company Number: FR-JNJFOC-20061105345

PATIENT
  Age: 36 Year
  Sex: Female

DRUGS (5)
  1. REMICADE [Suspect]
     Dosage: RESTARTED IN MAY-2006 ONCE EVERY 8 WEEKS
     Route: 042
  2. REMICADE [Suspect]
     Route: 042
  3. REMICADE [Suspect]
     Route: 042
  4. REMICADE [Suspect]
     Indication: CROHN'S DISEASE
     Route: 042
  5. HYDROCORTISONE [Concomitant]
     Indication: PREMEDICATION
     Route: 042

REACTIONS (3)
  - ANAPHYLACTIC SHOCK [None]
  - INFUSION RELATED REACTION [None]
  - SHOCK [None]
